FAERS Safety Report 6893251-8 (Version None)
Quarter: 2010Q3

REPORT INFORMATION
  Report Type: 
  Country: None (occurrence: None)
  Receive Date: 20100731
  Receipt Date: 20090718
  Transmission Date: 20110219
  Serious: No
  Sender: FDA-Public Use
  Company Number: US-PFIZER INC-2008007119

PATIENT
  Age: 48 Year
  Sex: Male
  Weight: 84 kg

DRUGS (2)
  1. NORVASC [Suspect]
     Indication: HYPERTENSION
     Dosage: DAILY
     Route: 048
     Dates: start: 20071101
  2. SUNITINIB MALATE [Concomitant]
     Indication: RENAL CANCER
     Dosage: DAILY
     Route: 048
     Dates: start: 20071004

REACTIONS (1)
  - BLOOD PRESSURE INADEQUATELY CONTROLLED [None]
